FAERS Safety Report 10310825 (Version 2)
Quarter: 2014Q3

REPORT INFORMATION
  Report Type: Spontaneous
  Country: DE (occurrence: DE)
  Receive Date: 20140717
  Receipt Date: 20140717
  Transmission Date: 20150326
  Serious: Yes (Other)
  Sender: FDA-Public Use
  Company Number: DE-BAXTER-2014BAX037616

PATIENT
  Sex: Male

DRUGS (2)
  1. DIANEAL PD-1 WITH DEXTROSE [Suspect]
     Active Substance: CALCIUM CHLORIDE\DEXTROSE\MAGNESIUM CHLORIDE\SODIUM CHLORIDE\SODIUM LACTATE
     Indication: PERITONEAL DIALYSIS
     Route: 033
  2. PHYSIONEAL 35 GLUCOSE 1,36 % W/V 13,6 MG/ML CLEAR-FLEX PERITONEALDIALY [Suspect]
     Active Substance: DEXTROSE\SODIUM BICARBONATE\SODIUM CHLORIDE\SODIUM LACTATE
     Indication: PERITONEAL DIALYSIS
     Route: 033

REACTIONS (4)
  - Hyperkalaemia [Unknown]
  - Peritonitis [Unknown]
  - Arrhythmia [Unknown]
  - Device malfunction [Unknown]
